FAERS Safety Report 6060526-4 (Version None)
Quarter: 2009Q1

REPORT INFORMATION
  Report Type: 
  Country: None (occurrence: None)
  Receive Date: 20090202
  Receipt Date: 20090126
  Transmission Date: 20090719
  Serious: Yes (Hospitalization)
  Sender: FDA-Public Use
  Company Number: ES-WYE-H07960809

PATIENT
  Age: 75 Year
  Sex: Female

DRUGS (10)
  1. TRANGOREX [Suspect]
     Route: 048
     Dates: start: 20081006, end: 20081116
  2. PREDNISONE [Concomitant]
     Route: 048
     Dates: start: 20081006
  3. OMEPRAZOLE [Concomitant]
     Indication: PROPHYLAXIS
     Route: 048
     Dates: start: 20081006
  4. SYMBICORT [Concomitant]
     Indication: CHRONIC OBSTRUCTIVE PULMONARY DISEASE
     Dosage: 1 UNIT EVERY 1 DAY
     Route: 055
     Dates: start: 20081006
  5. DEPRAX [Concomitant]
     Route: 048
     Dates: start: 20081006
  6. ACETYLCYSTEINE [Concomitant]
     Indication: CHRONIC OBSTRUCTIVE PULMONARY DISEASE
     Route: 048
     Dates: start: 20081006
  7. NOVONORM [Concomitant]
     Indication: TYPE 2 DIABETES MELLITUS
     Route: 048
     Dates: start: 20081006
  8. PLAVIX [Concomitant]
     Indication: PROPHYLAXIS
     Route: 048
     Dates: start: 20081006
  9. DIGOXIN [Interacting]
     Route: 048
     Dates: start: 20081006, end: 20081116
  10. AMERIDE [Concomitant]
     Indication: HYPERTENSION
     Dosage: 1 UNIT EVERY 1 DAY
     Route: 048
     Dates: start: 20081006

REACTIONS (3)
  - CHEST PAIN [None]
  - DRUG INTERACTION [None]
  - THERAPEUTIC AGENT TOXICITY [None]
